FAERS Safety Report 7928830-X (Version None)
Quarter: 2011Q4

REPORT INFORMATION
  Report Type: 
  Country: None (occurrence: None)
  Receive Date: 20111118
  Receipt Date: 20111109
  Transmission Date: 20120403
  Serious: Yes (Hospitalization)
  Sender: FDA-Public Use
  Company Number: GB-ROCHE-1012132

PATIENT
  Sex: Female

DRUGS (6)
  1. MIRCERA [Suspect]
     Indication: RENAL FAILURE CHRONIC
     Route: 042
  2. IPRATROPIUM INHALER [Concomitant]
     Dates: start: 20100310
  3. ACETAMINOPHEN [Concomitant]
     Dates: start: 20090513
  4. SALBUTAMOL INHALER [Concomitant]
     Dates: start: 20100310
  5. CLONAZEPAM [Concomitant]
     Dates: start: 20110620
  6. CALCIUM ACETATE [Concomitant]
     Dates: start: 20110316

REACTIONS (1)
  - HYDRONEPHROSIS [None]
